FAERS Safety Report 24962413 (Version 1)
Quarter: 2025Q1

REPORT INFORMATION
  Report Type: Spontaneous
  Country: US (occurrence: US)
  Receive Date: 20250212
  Receipt Date: 20250212
  Transmission Date: 20250408
  Serious: Yes (Hospitalization)
  Sender: FRESENIUS MEDICAL CARE
  Company Number: US-FMCRTG-FMC-2502-000193

PATIENT
  Age: 65 Year
  Sex: Female
  Weight: 72 kg

DRUGS (27)
  1. DELFLEX WITH DEXTROSE 1.5% LOW MAGNESIUM LOW CALCIUM [Suspect]
     Active Substance: CALCIUM CHLORIDE\DEXTROSE\MAGNESIUM CHLORIDE\SODIUM CHLORIDE\SODIUM LACTATE
     Indication: End stage renal disease
     Route: 033
     Dates: start: 20220502
  2. DELFLEX WITH DEXTROSE 2.5% LOW MAGNESIUM LOW CALCIUM [Suspect]
     Active Substance: CALCIUM CHLORIDE\DEXTROSE\MAGNESIUM CHLORIDE\SODIUM CHLORIDE\SODIUM LACTATE
     Indication: End stage renal disease
     Route: 033
     Dates: start: 20220502
  3. DELFLEX WITH DEXTROSE 4.25% LOW MAGNESIUM LOW CALCIUM [Suspect]
     Active Substance: CALCIUM CHLORIDE\DEXTROSE\MAGNESIUM CHLORIDE\SODIUM CHLORIDE\SODIUM LACTATE
     Indication: End stage renal disease
     Route: 033
     Dates: start: 20220502
  4. ACETAMINOPHEN [Concomitant]
     Active Substance: ACETAMINOPHEN
  5. ALLOPURINOL [Concomitant]
     Active Substance: ALLOPURINOL
  6. XANAX [Concomitant]
     Active Substance: ALPRAZOLAM
  7. ASCORBIC ACID [Concomitant]
     Active Substance: ASCORBIC ACID
  8. AZELASTINE [Concomitant]
     Active Substance: AZELASTINE
  9. CALCITRIOL [Concomitant]
     Active Substance: CALCITRIOL
  10. CEFUROXIME [Concomitant]
     Active Substance: CEFUROXIME
  11. CALCITRIOL [Concomitant]
     Active Substance: CALCITRIOL
  12. CEFUROXIME [Concomitant]
     Active Substance: CEFUROXIME
  13. CHOLECALCIFEROL [Concomitant]
     Active Substance: CHOLECALCIFEROL
  14. CINACALCET [Concomitant]
     Active Substance: CINACALCET
  15. CYANOCOBALAMIN [Concomitant]
     Active Substance: CYANOCOBALAMIN
  16. FOLIC ACID [Concomitant]
     Active Substance: FOLIC ACID
  17. GENTAMICIN [Concomitant]
     Active Substance: GENTAMICIN
  18. MONTELUKAST [Concomitant]
     Active Substance: MONTELUKAST
  19. NIFEDIPINE [Concomitant]
     Active Substance: NIFEDIPINE
  20. OXCARBAZEPINE [Concomitant]
     Active Substance: OXCARBAZEPINE
  21. OXYCODONE [Concomitant]
     Active Substance: OXYCODONE
  22. PANTOPRAZOLE [Concomitant]
     Active Substance: PANTOPRAZOLE
  23. ROSUVASTATIN [Concomitant]
     Active Substance: ROSUVASTATIN
  24. SERTRALINE [Concomitant]
     Active Substance: SERTRALINE HYDROCHLORIDE
  25. SEVELAMER CARBONATE [Concomitant]
     Active Substance: SEVELAMER CARBONATE
  26. SUCROFERRIC OXYHYDROXIDE [Concomitant]
     Active Substance: SUCROFERRIC OXYHYDROXIDE
  27. ZINC SULFATE [Concomitant]
     Active Substance: ZINC SULFATE

REACTIONS (2)
  - Encephalopathy [Unknown]
  - Product dose omission issue [Unknown]

NARRATIVE: CASE EVENT DATE: 20250119
